FAERS Safety Report 8818995 (Version 1)
Quarter: 2012Q4

REPORT INFORMATION
  Report Type: 
  Country: US (occurrence: US)
  Receive Date: 20121002
  Receipt Date: 20121002
  Transmission Date: 20130627
  Serious: No
  Sender: FDA-Public Use
  Company Number: US-PFIZER INC-2012239743

PATIENT
  Age: 8 Year
  Sex: Female
  Weight: 19 kg

DRUGS (1)
  1. GENOTROPIN [Suspect]
     Indication: GROWTH RETARDATION
     Dosage: 0.8 mg, 1x/day
     Route: 030
     Dates: start: 20120901

REACTIONS (2)
  - Incorrect route of drug administration [Unknown]
  - Injection site pain [Unknown]
